FAERS Safety Report 7398410-6 (Version None)
Quarter: 2011Q2

REPORT INFORMATION
  Report Type: 
  Country: None (occurrence: None)
  Receive Date: 20110406
  Receipt Date: 20110331
  Transmission Date: 20111010
  Serious: Yes (Death, Hospitalization)
  Sender: FDA-Public Use
  Company Number: DE-BRISTOL-MYERS SQUIBB COMPANY-15647811

PATIENT
  Age: 47 Year
  Sex: Male

DRUGS (3)
  1. CISPLATIN [Suspect]
     Indication: HEAD AND NECK CANCER
     Dosage: STOPPED
     Route: 042
     Dates: start: 20110125
  2. CETUXIMAB [Suspect]
     Indication: HEAD AND NECK CANCER
     Dosage: STOPPED
     Route: 042
     Dates: start: 20110125
  3. FLUOROURACIL [Suspect]
     Indication: HEAD AND NECK CANCER
     Dosage: STOPPED
     Route: 042
     Dates: start: 20110125

REACTIONS (1)
  - ACUTE HEPATIC FAILURE [None]
